FAERS Safety Report 21711857 (Version 1)
Quarter: 2022Q4

REPORT INFORMATION
  Report Type: Other
  Country: US (occurrence: None)
  Receive Date: 20221212
  Receipt Date: 20221212
  Transmission Date: 20230113
  Serious: Yes (Other)
  Sender: FDA-Public Use
  Company Number: US-ROCHE-3231255

PATIENT
  Age: 78 Year
  Sex: Male

DRUGS (6)
  1. ALECTINIB [Suspect]
     Active Substance: ALECTINIB
     Indication: Lung adenocarcinoma stage III
     Route: 065
  2. LORLATINIB [Concomitant]
     Active Substance: LORLATINIB
     Indication: Lung adenocarcinoma stage III
     Route: 065
  3. CISPLATIN [Concomitant]
     Active Substance: CISPLATIN
     Route: 065
  4. PEMETREXED [Concomitant]
     Active Substance: PEMETREXED
     Route: 065
  5. CRIZOTINIB [Concomitant]
     Active Substance: CRIZOTINIB
     Indication: Lung adenocarcinoma stage III
  6. CARBOPLATIN [Concomitant]
     Active Substance: CARBOPLATIN
     Route: 065

REACTIONS (3)
  - Renal impairment [Unknown]
  - Blood creatine phosphokinase increased [Unknown]
  - Disease progression [Unknown]
